FAERS Safety Report 9105546 (Version 1)
Quarter: 2013Q1

REPORT INFORMATION
  Report Type: Spontaneous
  Country: US (occurrence: US)
  Receive Date: 20130220
  Receipt Date: 20130220
  Transmission Date: 20140127
  Serious: Yes (Other)
  Sender: FDA-Public Use
  Company Number: US-ELI_LILLY_AND_COMPANY-US201302003290

PATIENT
  Sex: 0

DRUGS (2)
  1. CYMBALTA [Suspect]
     Indication: PAIN MANAGEMENT
     Dosage: 30 MG, QD
  2. CYMBALTA [Suspect]
     Dosage: 60 MG, UNKNOWN

REACTIONS (3)
  - Sensory loss [Unknown]
  - Vertigo [Unknown]
  - Fall [Unknown]
